FAERS Safety Report 7933046-7 (Version None)
Quarter: 2011Q4

REPORT INFORMATION
  Report Type: 
  Country: None (occurrence: None)
  Receive Date: 20111122
  Receipt Date: 20111109
  Transmission Date: 20120403
  Serious: Yes (Hospitalization, Other)
  Sender: FDA-Public Use
  Company Number: US-ELI_LILLY_AND_COMPANY-US201108009466

PATIENT
  Age: 66 Year
  Sex: Female
  Weight: 58.503 kg

DRUGS (18)
  1. AMITRIPTYLINE HCL [Concomitant]
  2. METOPROLOL TARTRATE [Concomitant]
  3. AMLODIPINE [Concomitant]
  4. LEXAPRO [Concomitant]
  5. VERAMYST [Concomitant]
  6. ALBUTEROL [Concomitant]
  7. METHADONE HCL [Concomitant]
  8. SPIRIVA [Concomitant]
  9. LYRICA [Concomitant]
  10. FOLIC ACID [Concomitant]
  11. BACTRIM DS [Concomitant]
  12. CLONIDINE [Concomitant]
  13. SULFASALAZINE [Concomitant]
  14. FORTEO [Suspect]
     Indication: OSTEOPOROSIS
     Dosage: 20 UG, QD
     Route: 058
  15. SYNTHROID [Concomitant]
  16. OMEPRAZOLE [Concomitant]
  17. OXYCODONE HCL [Concomitant]
  18. PREDNISONE TAB [Concomitant]

REACTIONS (4)
  - ASPIRATION [None]
  - SINUSITIS [None]
  - PNEUMONIA [None]
  - PNEUMONITIS [None]
